FAERS Safety Report 21606017 (Version 1)
Quarter: 2022Q4

REPORT INFORMATION
  Report Type: Spontaneous
  Country: AU (occurrence: AU)
  Receive Date: 20221117
  Receipt Date: 20221117
  Transmission Date: 20230113
  Serious: Yes (Other)
  Sender: FDA-Public Use
  Company Number: AU-NOVOPROD-974555

PATIENT

DRUGS (1)
  1. OZEMPIC [Suspect]
     Active Substance: SEMAGLUTIDE
     Indication: Product used for unknown indication
     Dosage: UNK
     Dates: end: 20221023

REACTIONS (7)
  - Renal injury [Unknown]
  - Eye injury [Unknown]
  - Blood glucose increased [Unknown]
  - Blood glucose increased [Unknown]
  - Hyperglycaemia [Unknown]
  - Intentional product use issue [Unknown]
  - Product availability issue [Unknown]
